FAERS Safety Report 5107545-X (Version None)
Quarter: 2006Q3

REPORT INFORMATION
  Report Type: 
  Country: None (occurrence: None)
  Receive Date: 20060913
  Receipt Date: 20060913
  Transmission Date: 20061208
  Serious: No
  Sender: FDA-Public Use
  Company Number: None

PATIENT
  Age: 43 Year
  Sex: Female
  Weight: 73.4827 kg

DRUGS (1)
  1. DYAZIDE [Suspect]
     Indication: MENIERE'S DISEASE
     Dosage: TAKE ONE CAPSULE IN THE MORNING
     Dates: start: 20060805, end: 20060908

REACTIONS (6)
  - ABDOMINAL DISTENSION [None]
  - BREAST ENLARGEMENT [None]
  - HEADACHE [None]
  - METRORRHAGIA [None]
  - NIPPLE PAIN [None]
  - VOMITING [None]
